FAERS Safety Report 7131249-5 (Version None)
Quarter: 2010Q4

REPORT INFORMATION
  Report Type: 
  Country: None (occurrence: None)
  Receive Date: 20101201
  Receipt Date: 20101129
  Transmission Date: 20110411
  Serious: Yes (Other)
  Sender: FDA-Public Use
  Company Number: US-BRISTOL-MYERS SQUIBB COMPANY-15410418

PATIENT
  Age: 56 Year
  Sex: Female
  Weight: 67 kg

DRUGS (2)
  1. COUMADIN [Suspect]
     Dosage: 1DF=MONDAY THRU THURSDAY 7.5MG AND FRIDAY, SATURDAY, AND SUNDAY 5MG DOSE
  2. VITAMIN K TAB [Suspect]

REACTIONS (3)
  - AORTIC VALVE DISEASE [None]
  - INTERNATIONAL NORMALISED RATIO DECREASED [None]
  - MITRAL VALVE DISEASE [None]
